FAERS Safety Report 4754449-8 (Version None)
Quarter: 2005Q3

REPORT INFORMATION
  Report Type: 
  Country: None (occurrence: None)
  Receive Date: 20050825
  Receipt Date: 20050825
  Transmission Date: 20060218
  Serious: Yes (Hospitalization)
  Sender: FDA-Public Use
  Company Number: None

PATIENT
  Age: 81 Year
  Sex: Female

DRUGS (4)
  1. ZYPREXA [Suspect]
     Indication: DELIRIUM
     Dosage: 2.5MG    AT BEDTIME   PO
     Route: 048
     Dates: start: 20050722, end: 20050726
  2. ZYPREXA [Suspect]
     Indication: DELUSION
     Dosage: 2.5MG    AT BEDTIME   PO
     Route: 048
     Dates: start: 20050722, end: 20050726
  3. METHADONE HCL [Concomitant]
  4. DEPAKOTE [Concomitant]

REACTIONS (9)
  - ANOREXIA [None]
  - CONFUSIONAL STATE [None]
  - DELIRIUM [None]
  - DELUSION [None]
  - DYSTONIA [None]
  - HEART RATE INCREASED [None]
  - MUSCLE RIGIDITY [None]
  - SOMNOLENCE [None]
  - TORTICOLLIS [None]
